FAERS Safety Report 5679524-5 (Version None)
Quarter: 2008Q1

REPORT INFORMATION
  Report Type: 
  Country: None (occurrence: None)
  Receive Date: 20080325
  Receipt Date: 20080320
  Transmission Date: 20080703
  Serious: Yes (Hospitalization)
  Sender: FDA-Public Use
  Company Number: US-BOEHRINGER INGELHEIM GMBH, GERMANY-2007-BP-22490BP

PATIENT
  Sex: Male

DRUGS (5)
  1. CLONIDINE HCL [Suspect]
     Indication: HYPERTENSION
     Route: 048
  2. NEORAL [Suspect]
     Route: 048
     Dates: start: 20050921
  3. PREDNISONE TAB [Concomitant]
     Dates: start: 20050923
  4. CELLCEPT [Concomitant]
     Dates: start: 20050919
  5. BASILIXIMAB [Concomitant]
     Dates: start: 20050919, end: 20050923

REACTIONS (2)
  - DIZZINESS [None]
  - FALL [None]
